FAERS Safety Report 8880286 (Version 1)
Quarter: 2012Q4

REPORT INFORMATION
  Report Type: 
  Country: FR (occurrence: FR)
  Receive Date: 20121031
  Receipt Date: 20121031
  Transmission Date: 20130627
  Serious: Yes (Hospitalization)
  Sender: FDA-Public Use
  Company Number: FR-009507513-1210FRA011419

PATIENT
  Sex: Male

DRUGS (10)
  1. ATHYMIL [Suspect]
     Indication: PRODUCT USED FOR UNKNOWN INDICATION
     Dosage: 30 mg, qd
     Route: 048
  2. SINEMET [Suspect]
     Indication: PRODUCT USED FOR UNKNOWN INDICATION
     Dosage: UNK UNK
     Route: 048
  3. SINEMET L.P. [Suspect]
     Indication: PRODUCT USED FOR UNKNOWN INDICATION
     Dosage: UNK
  4. SINEMET 100 MG / 10 MG COMPRIME SECABLE [Suspect]
     Indication: PRODUCT USED FOR UNKNOWN INDICATION
     Dosage: 1 DF, qid
  5. XATRAL [Suspect]
     Indication: PRODUCT USED FOR UNKNOWN INDICATION
     Dosage: 10 mg, qd
     Route: 048
     Dates: start: 201207
  6. PREVISCAN [Concomitant]
  7. TAREG [Concomitant]
     Dosage: 80 mg, qd
  8. INEXIUM [Concomitant]
     Dosage: 20 mg, qd
  9. NEURONTIN [Concomitant]
     Dosage: 100 mg, qam
  10. DAFALGAN [Concomitant]
     Dosage: 1 g, prn

REACTIONS (4)
  - Hypotension [Not Recovered/Not Resolved]
  - Bradyphrenia [None]
  - Somnolence [None]
  - Orthostatic hypotension [None]
